FAERS Safety Report 5134268-3 (Version None)
Quarter: 2006Q4

REPORT INFORMATION
  Report Type: 
  Country: None (occurrence: None)
  Receive Date: 20061019
  Receipt Date: 20061003
  Transmission Date: 20070319
  Serious: Yes (Hospitalization, Disabling)
  Sender: FDA-Public Use
  Company Number: 229658

PATIENT
  Age: 62 Year
  Sex: Female

DRUGS (9)
  1. AVASTIN [Suspect]
     Indication: COLORECTAL CANCER
     Dosage: 400 MG, INTRAVENOUS
     Route: 042
     Dates: start: 20060526, end: 20060809
  2. IRINOTECAN HCL [Concomitant]
  3. FLUOROURACIL [Concomitant]
  4. LEUCOVORIN CALCIUM [Concomitant]
  5. ISOVORIN (CALCIUM LEVOFOLINATE) [Concomitant]
  6. KYTRIL [Concomitant]
  7. FUROSEMIDE [Concomitant]
  8. ORADEXON (DEXAMETHASONE) [Concomitant]
  9. CIPRAMIL (CITALOPRAM) [Concomitant]

REACTIONS (5)
  - CEREBRAL INFARCTION [None]
  - DYSPHASIA [None]
  - FALL [None]
  - HEMIPLEGIA [None]
  - VISION BLURRED [None]
